FAERS Safety Report 9817531 (Version 2)
Quarter: 2014Q1

REPORT INFORMATION
  Report Type: Spontaneous
  Country: JP (occurrence: JP)
  Receive Date: 20140115
  Receipt Date: 20140207
  Transmission Date: 20141002
  Serious: Yes (Hospitalization)
  Sender: FDA-Public Use
  Company Number: JP-ROCHE-1330924

PATIENT
  Age: 57 Year
  Sex: Female

DRUGS (10)
  1. XELODA [Suspect]
     Indication: BREAST CANCER METASTATIC
     Dosage: ON DAYS 1-14
     Route: 048
     Dates: start: 201106
  2. XELODA [Suspect]
     Indication: BREAST CANCER METASTATIC
     Route: 048
     Dates: start: 201201
  3. HERCEPTIN [Suspect]
     Indication: BREAST CANCER METASTATIC
     Route: 041
     Dates: start: 201010, end: 201010
  4. HERCEPTIN [Suspect]
     Route: 041
     Dates: start: 201010, end: 201101
  5. HERCEPTIN [Suspect]
     Route: 041
     Dates: start: 201106, end: 201106
  6. HERCEPTIN [Suspect]
     Route: 041
     Dates: start: 201106
  7. TYKERB [Suspect]
     Indication: BREAST CANCER METASTATIC
     Route: 048
     Dates: start: 201201
  8. PACLITAXEL [Suspect]
     Indication: BREAST CANCER METASTATIC
     Dosage: 3 WEEKS ON/1 WEEK OFF
     Route: 042
     Dates: start: 201010, end: 201101
  9. DOXORUBICIN HCL [Concomitant]
     Indication: BREAST CANCER METASTATIC
     Route: 041
     Dates: start: 201102
  10. CYCLOPHOSPHAMIDE [Concomitant]
     Indication: BREAST CANCER METASTATIC
     Route: 065
     Dates: start: 201102

REACTIONS (2)
  - Interstitial lung disease [Recovering/Resolving]
  - Palmar-plantar erythrodysaesthesia syndrome [Recovering/Resolving]
